FAERS Safety Report 24940920 (Version 2)
Quarter: 2025Q1

REPORT INFORMATION
  Report Type: Spontaneous
  Country: US (occurrence: US)
  Receive Date: 20250207
  Receipt Date: 20250306
  Transmission Date: 20250409
  Serious: No
  Sender: DR REDDYS
  Company Number: US-DRL-USA-USA/2025/02/001936

PATIENT
  Sex: Female
  Weight: 37.01 kg

DRUGS (2)
  1. JAVYGTOR [Suspect]
     Active Substance: SAPROPTERIN DIHYDROCHLORIDE
     Indication: Phenylketonuria
     Dosage: DISSOLVE TWO 100 MG POWDER PACKETS AND ONE 500 MG POWDER PACKET IN 4 TO 8 OUNCES OF WATER OR APPLE J
     Route: 048
  2. JAVYGTOR [Suspect]
     Active Substance: SAPROPTERIN DIHYDROCHLORIDE
     Indication: Phenylketonuria
     Dosage: DISSOLVE TWO 100 MG POWDER PACKETS AND ONE 500 MG POWDER PACKET IN 4 TO 8 OUNCES OF WATER OR APPLE J
     Route: 048

REACTIONS (1)
  - Nasopharyngitis [Unknown]
